FAERS Safety Report 6939262-5 (Version None)
Quarter: 2010Q3

REPORT INFORMATION
  Report Type: 
  Country: None (occurrence: None)
  Receive Date: 20100824
  Receipt Date: 20100813
  Transmission Date: 20110219
  Serious: Yes (Death, Disabling)
  Sender: FDA-Public Use
  Company Number: AU-BAXTER-2010BH019571

PATIENT
  Age: 82 Year
  Sex: Male

DRUGS (1)
  1. EXTRANEAL [Suspect]
     Indication: PERITONEAL DIALYSIS
     Route: 033
     Dates: end: 20100721

REACTIONS (3)
  - CHEMICAL PERITONITIS [None]
  - DEATH [None]
  - MALAISE [None]
